FAERS Safety Report 5736618-3 (Version None)
Quarter: 2008Q2

REPORT INFORMATION
  Report Type: 
  Country: None (occurrence: None)
  Receive Date: 20080513
  Receipt Date: 20080502
  Transmission Date: 20081010
  Serious: Yes (Hospitalization)
  Sender: FDA-Public Use
  Company Number: MX-PFIZER INC-2008038986

PATIENT
  Sex: Male
  Weight: 56 kg

DRUGS (2)
  1. AZULFIDINA [Suspect]
     Indication: ACNE
     Dosage: FREQ:4 TAB WEEKLY
     Route: 048
  2. BENZACLIN [Concomitant]
     Route: 061

REACTIONS (6)
  - BRONCHITIS [None]
  - INCREASED UPPER AIRWAY SECRETION [None]
  - PRURITUS [None]
  - PYREXIA [None]
  - RASH [None]
  - RHINORRHOEA [None]
